FAERS Safety Report 10110279 (Version 1)
Quarter: 2014Q2

REPORT INFORMATION
  Report Type: Report from Study
  Country: US (occurrence: US)
  Receive Date: 20140425
  Receipt Date: 20140425
  Transmission Date: 20141212
  Serious: Yes (Other)
  Sender: FDA-Public Use
  Company Number: US-JNJFOC-20140415624

PATIENT
  Age: 42 Year
  Sex: Male

DRUGS (5)
  1. REMICADE [Suspect]
     Indication: CROHN^S DISEASE
     Route: 042
  2. REMICADE [Suspect]
     Indication: CROHN^S DISEASE
     Dosage: DOUBLE DOSE
     Route: 042
  3. REMICADE [Suspect]
     Indication: CROHN^S DISEASE
     Dosage: SINGLE DOSE
     Route: 042
     Dates: start: 20140405
  4. REMICADE [Suspect]
     Indication: CROHN^S DISEASE
     Dosage: SINGLE DOSE
     Route: 042
     Dates: start: 20140305
  5. PRILOSEC [Concomitant]
     Route: 065

REACTIONS (7)
  - Gastrointestinal oedema [Unknown]
  - Gastrointestinal pain [Unknown]
  - Presyncope [Unknown]
  - Dizziness [Unknown]
  - Chills [Unknown]
  - Pain [Unknown]
  - Pyrexia [Unknown]
